FAERS Safety Report 8797023 (Version 1)
Quarter: 2012Q4

REPORT INFORMATION
  Report Type: 
  Country: CA (occurrence: CA)
  Receive Date: 20120919
  Receipt Date: 20120919
  Transmission Date: 20130627
  Serious: Yes (Other)
  Sender: FDA-Public Use
  Company Number: CA-GLAXOSMITHKLINE-A0993451A

PATIENT
  Age: 50 Year
  Sex: Male

DRUGS (1)
  1. AVANDIA [Suspect]
     Indication: PRODUCT USED FOR UNKNOWN INDICATION
     Route: 065
     Dates: end: 2012

REACTIONS (8)
  - Cardiac failure congestive [Unknown]
  - Dyspnoea [Unknown]
  - Weight increased [Unknown]
  - Fatigue [Unknown]
  - Red blood cell count abnormal [Unknown]
  - Anxiety disorder [Unknown]
  - Oxygen saturation decreased [Unknown]
  - Adverse event [Unknown]
